FAERS Safety Report 8394360-7 (Version None)
Quarter: 2012Q2

REPORT INFORMATION
  Report Type: 
  Country: None (occurrence: None)
  Receive Date: 20120530
  Receipt Date: 20120521
  Transmission Date: 20120825
  Serious: Yes (Other)
  Sender: FDA-Public Use
  Company Number: JP-VERTEX PHARMACEUTICALS INC.-AE-2012-004357

PATIENT
  Age: 74 Year
  Sex: Male

DRUGS (12)
  1. TELAVIC (TELAPREVIR) [Suspect]
     Indication: HEPATITIS C
     Route: 048
     Dates: start: 20120202
  2. RIBAVIRIN [Concomitant]
     Indication: HEPATITIS C
     Route: 048
  3. TELAVIC (TELAPREVIR) [Suspect]
     Route: 048
     Dates: start: 20120322, end: 20120418
  4. ALLOPURINOL [Concomitant]
     Route: 048
     Dates: start: 20120207, end: 20120215
  5. TELAVIC (TELAPREVIR) [Suspect]
     Route: 048
     Dates: start: 20120419, end: 20120426
  6. PEGINTERFERON ALFA-2B [Concomitant]
     Indication: HEPATITIS C
     Route: 051
  7. RIBAVIRIN [Concomitant]
     Route: 048
     Dates: start: 20120405, end: 20120426
  8. PREDNISOLONE [Concomitant]
     Route: 048
     Dates: start: 20120209
  9. LANSOPRAZOLE [Concomitant]
     Route: 048
  10. ALLOPURINOL [Concomitant]
     Route: 048
     Dates: start: 20120216
  11. ZESULAN [Concomitant]
     Route: 048
     Dates: start: 20120209
  12. NERISONA [Concomitant]
     Route: 061
     Dates: start: 20120209

REACTIONS (2)
  - RENAL DISORDER [None]
  - HYPERURICAEMIA [None]
